FAERS Safety Report 18874813 (Version 2)
Quarter: 2021Q4

REPORT INFORMATION
  Report Type: Spontaneous
  Country: US (occurrence: None)
  Receive Date: 20210210
  Receipt Date: 20211103
  Transmission Date: 20220303
  Serious: Yes (Other)
  Sender: FDA-Public Use
  Company Number: 2021A027297

PATIENT
  Age: 54 Year
  Sex: Female
  Weight: 78.5 kg

DRUGS (51)
  1. PRILOSEC [Suspect]
     Active Substance: OMEPRAZOLE MAGNESIUM
     Indication: Gastrooesophageal reflux disease
     Route: 048
     Dates: start: 2008, end: 2017
  2. PRILOSEC [Suspect]
     Active Substance: OMEPRAZOLE MAGNESIUM
     Indication: Gastrooesophageal reflux disease
     Route: 048
     Dates: start: 2007, end: 2017
  3. PRILOSEC [Suspect]
     Active Substance: OMEPRAZOLE MAGNESIUM
     Indication: Gastrooesophageal reflux disease
     Dosage: GENERIC
     Route: 065
     Dates: end: 2020
  4. PRILOSEC OTC [Suspect]
     Active Substance: OMEPRAZOLE MAGNESIUM
     Indication: Gastrooesophageal reflux disease
     Route: 048
     Dates: start: 2008, end: 2017
  5. PREVACID [Suspect]
     Active Substance: LANSOPRAZOLE
     Indication: Gastrooesophageal reflux disease
     Route: 065
     Dates: start: 2008, end: 2017
  6. PREVACID [Suspect]
     Active Substance: LANSOPRAZOLE
     Indication: Gastrooesophageal reflux disease
     Route: 065
     Dates: start: 2008, end: 2017
  7. PREVACID 24 HR [Suspect]
     Active Substance: LANSOPRAZOLE
     Indication: Gastrooesophageal reflux disease
     Route: 065
     Dates: start: 2008, end: 2017
  8. PREVACID 24 HR [Suspect]
     Active Substance: LANSOPRAZOLE
     Indication: Gastrooesophageal reflux disease
     Route: 065
     Dates: start: 2009, end: 2017
  9. DEXILANT [Suspect]
     Active Substance: DEXLANSOPRAZOLE
     Indication: Gastrooesophageal reflux disease
     Route: 065
     Dates: start: 2011
  10. NAPROXEN [Concomitant]
     Active Substance: NAPROXEN
     Indication: Pain
     Route: 065
     Dates: start: 2012, end: 2016
  11. NAPROXEN [Concomitant]
     Active Substance: NAPROXEN
     Indication: Pain
     Route: 065
     Dates: start: 2020
  12. LISINOPRIL [Concomitant]
     Active Substance: LISINOPRIL
     Indication: Blood pressure abnormal
     Route: 065
     Dates: start: 2008
  13. LISINOPRIL [Concomitant]
     Active Substance: LISINOPRIL
     Indication: Blood pressure abnormal
     Route: 065
     Dates: start: 2014, end: 2016
  14. TRAMADOL [Concomitant]
     Active Substance: TRAMADOL
     Indication: Pain
     Route: 065
     Dates: start: 2011
  15. TRAMADOL [Concomitant]
     Active Substance: TRAMADOL
     Indication: Pain
     Route: 065
     Dates: start: 2014, end: 2018
  16. TRAMADOL [Concomitant]
     Active Substance: TRAMADOL
     Indication: Pain
     Route: 065
     Dates: start: 2020
  17. HYDROCHLOROTHIAZIDE [Concomitant]
     Active Substance: HYDROCHLOROTHIAZIDE
     Indication: Blood pressure abnormal
     Route: 065
     Dates: start: 2014, end: 2016
  18. AZITHROMYCIN [Concomitant]
     Active Substance: AZITHROMYCIN
     Indication: Infection
     Route: 065
     Dates: start: 2008
  19. AZITHROMYCIN [Concomitant]
     Active Substance: AZITHROMYCIN
     Indication: Infection
     Route: 065
     Dates: start: 2014, end: 2019
  20. MELOXICAM [Concomitant]
     Active Substance: MELOXICAM
     Indication: Pain
     Route: 065
     Dates: start: 2008, end: 2019
  21. CIPROFLOXACIN [Concomitant]
     Active Substance: CIPROFLOXACIN
     Indication: Infection
     Route: 065
     Dates: start: 2013
  22. CELECOVIX [Concomitant]
     Indication: Pain
     Route: 065
     Dates: start: 2011
  23. SAVELLA [Concomitant]
     Active Substance: MILNACIPRAN HYDROCHLORIDE
  24. VESICARE [Concomitant]
     Active Substance: SOLIFENACIN SUCCINATE
  25. TENORMIN [Concomitant]
     Active Substance: ATENOLOL
  26. SERTRALINE [Concomitant]
     Active Substance: SERTRALINE HYDROCHLORIDE
  27. ZOCOR [Concomitant]
     Active Substance: SIMVASTATIN
  28. FLONASE [Concomitant]
     Active Substance: FLUTICASONE PROPIONATE
  29. NUVIGIL [Concomitant]
     Active Substance: ARMODAFINIL
  30. OXYBUTYNIN [Concomitant]
     Active Substance: OXYBUTYNIN
  31. CITALOPRAM [Concomitant]
     Active Substance: CITALOPRAM HYDROBROMIDE
  32. PHENAZOPYRIDINE [Concomitant]
     Active Substance: PHENAZOPYRIDINE
  33. PREDNISONE [Concomitant]
     Active Substance: PREDNISONE
  34. ALPRAZOLAM [Concomitant]
     Active Substance: ALPRAZOLAM
  35. MIRTAZAPINE [Concomitant]
     Active Substance: MIRTAZAPINE
  36. TEMAZEPAM [Concomitant]
     Active Substance: TEMAZEPAM
  37. VENLAFAXINE [Concomitant]
     Active Substance: VENLAFAXINE HYDROCHLORIDE
  38. ACYCLOVIR [Concomitant]
     Active Substance: ACYCLOVIR
  39. LORAZEPAM [Concomitant]
     Active Substance: LORAZEPAM
  40. TOPIRAMATE [Concomitant]
     Active Substance: TOPIRAMATE
  41. PAROXETINE [Concomitant]
     Active Substance: PAROXETINE
  42. VALACYCLOVIR [Concomitant]
     Active Substance: VALACYCLOVIR HYDROCHLORIDE
  43. DIFLUCAN [Concomitant]
     Active Substance: FLUCONAZOLE
  44. LOTEMAX [Concomitant]
     Active Substance: LOTEPREDNOL ETABONATE
  45. AMOXICILLIN [Concomitant]
     Active Substance: AMOXICILLIN
  46. AMPHETAMINE [Concomitant]
     Active Substance: AMPHETAMINE
  47. MORPHINE [Concomitant]
     Active Substance: MORPHINE
  48. METHOCARBAMOL [Concomitant]
     Active Substance: METHOCARBAMOL
  49. METHYLPREDNISOLONE [Concomitant]
     Active Substance: METHYLPREDNISOLONE
  50. CYCLOBENZAPRINE [Concomitant]
     Active Substance: CYCLOBENZAPRINE
  51. BENICAR [Concomitant]
     Active Substance: OLMESARTAN MEDOXOMIL

REACTIONS (3)
  - Acute kidney injury [Recovered/Resolved]
  - Chronic kidney disease [Unknown]
  - Chronic kidney disease-mineral and bone disorder [Unknown]

NARRATIVE: CASE EVENT DATE: 20170101
